FAERS Safety Report 12968925 (Version 1)
Quarter: 2016Q4

REPORT INFORMATION
  Report Type: Report from Study
  Country: US (occurrence: US)
  Receive Date: 20161123
  Receipt Date: 20161123
  Transmission Date: 20170207
  Serious: Yes (Other)
  Sender: FDA-Public Use
  Company Number: US-AEGERION PHARMACEUTICALS INC-AEGR002740

PATIENT
  Sex: Female
  Weight: 73.47 kg

DRUGS (1)
  1. JUXTAPID [Suspect]
     Active Substance: LOMITAPIDE MESYLATE
     Indication: TYPE IIA HYPERLIPIDAEMIA
     Dosage: 5 MG, QHS
     Route: 048
     Dates: start: 2013, end: 2016

REACTIONS (3)
  - Therapy cessation [Unknown]
  - Liver function test increased [Unknown]
  - Hepatic mass [Unknown]

NARRATIVE: CASE EVENT DATE: 2016
